FAERS Safety Report 6100843-2 (Version None)
Quarter: 2009Q1

REPORT INFORMATION
  Report Type: 
  Country: None (occurrence: None)
  Receive Date: 20090304
  Receipt Date: 20090218
  Transmission Date: 20090719
  Serious: Yes (Other)
  Sender: FDA-Public Use
  Company Number: IL-RANBAXY-2009RR-21971

PATIENT
  Age: 5 Year
  Sex: Male

DRUGS (8)
  1. PARACETAMOL [Suspect]
  2. HISTAFED [Suspect]
  3. IBUPROFEN [Suspect]
  4. METAMIZOLE [Suspect]
  5. PARACETAMOL [Concomitant]
  6. HISTAFED [Concomitant]
  7. IBUPROFEN [Concomitant]
  8. DIPYRONE [Concomitant]

REACTIONS (1)
  - TOXIC EPIDERMAL NECROLYSIS [None]
